FAERS Safety Report 10391846 (Version 3)
Quarter: 2014Q3

REPORT INFORMATION
  Report Type: Report from Study
  Country: CA (occurrence: CA)
  Receive Date: 20140819
  Receipt Date: 20140908
  Transmission Date: 20150326
  Serious: Yes (Hospitalization)
  Sender: FDA-Public Use
  Company Number: CA-ROCHE-1432495

PATIENT
  Sex: Male

DRUGS (7)
  1. RITUXAN [Suspect]
     Active Substance: RITUXIMAB
     Indication: RHEUMATOID ARTHRITIS
     Dosage: DATE OF NEXT INFUSION: 27/FEB/2014, 31/JUL/2014 AND 14/AUG/2014.
     Route: 042
     Dates: start: 20130802
  2. VITAMIN C [Concomitant]
     Active Substance: ASCORBIC ACID
  3. METHYLPREDNISOLONE [Concomitant]
     Active Substance: METHYLPREDNISOLONE
     Route: 042
     Dates: start: 20130802
  4. SPIRIVA [Concomitant]
     Active Substance: TIOTROPIUM BROMIDE MONOHYDRATE
  5. ACETAMINOPHEN. [Concomitant]
     Active Substance: ACETAMINOPHEN
     Route: 048
     Dates: start: 20130802
  6. LORAZEPAM. [Concomitant]
     Active Substance: LORAZEPAM
     Dosage: (PRN - WHEN HE TRAVELS, WITH FLIGHTS).
     Route: 065
  7. PREDNISONE. [Concomitant]
     Active Substance: PREDNISONE
     Route: 065
     Dates: start: 201401

REACTIONS (3)
  - Cardiac failure [Unknown]
  - Rash [Recovered/Resolved]
  - Pleural effusion [Unknown]

NARRATIVE: CASE EVENT DATE: 2014
